FAERS Safety Report 9850902 (Version 2)
Quarter: 2014Q1

REPORT INFORMATION
  Report Type: Spontaneous
  Country: US (occurrence: None)
  Receive Date: 20140124
  Receipt Date: 20140131
  Transmission Date: 20141002
  Serious: Yes (Death)
  Sender: FDA-Public Use
  Company Number: 2014AP000342

PATIENT
  Age: 31 Year
  Sex: Male

DRUGS (2)
  1. OMEPRAZOLE DELAYED-RELEASE CAPSULES, USP [Suspect]
     Route: 048
  2. COLCHICINE [Suspect]
     Route: 048

REACTIONS (6)
  - Completed suicide [None]
  - Exposure via ingestion [None]
  - Nausea [None]
  - Vomiting [None]
  - Multi-organ failure [None]
  - Hepatotoxicity [None]
